FAERS Safety Report 4720213-9 (Version None)
Quarter: 2005Q3

REPORT INFORMATION
  Report Type: 
  Country: None (occurrence: None)
  Receive Date: 20050719
  Receipt Date: 20050719
  Transmission Date: 20060218
  Serious: No
  Sender: FDA-Public Use
  Company Number: None

PATIENT
  Sex: Female
  Weight: 51.7101 kg

DRUGS (2)
  1. RESTASIS [Suspect]
     Indication: DRY EYE
     Dosage: ONE DROP  Q 12 HOURS  OPHTHALMIC
     Route: 047
     Dates: start: 20050609, end: 20050620
  2. ZOCOR [Concomitant]

REACTIONS (1)
  - GLAUCOMA [None]
